FAERS Safety Report 9094543 (Version 1)
Quarter: 2013Q1

REPORT INFORMATION
  Report Type: Spontaneous
  Country: US (occurrence: US)
  Receive Date: 20130204
  Receipt Date: 20130204
  Transmission Date: 20140127
  Serious: Yes (Other)
  Sender: FDA-Public Use
  Company Number: US-RB-049144-13

PATIENT
  Age: 85 Year
  Sex: Male

DRUGS (2)
  1. MUCINEX D [Suspect]
     Indication: PRODUCT USED FOR UNKNOWN INDICATION
     Dosage: LAST USED ON 22-JAN-2013
     Route: 048
     Dates: start: 20130117
  2. MUCINEX D [Suspect]

REACTIONS (1)
  - Epistaxis [Not Recovered/Not Resolved]
